FAERS Safety Report 13365569 (Version 1)
Quarter: 2017Q1

REPORT INFORMATION
  Report Type: Spontaneous
  Country: US (occurrence: US)
  Receive Date: 20170323
  Receipt Date: 20170323
  Transmission Date: 20170429
  Serious: Yes (Hospitalization, Other)
  Sender: FDA-Public Use
  Company Number: US-WARNER CHILCOTT-2016-001047

PATIENT
  Age: 75 Year
  Sex: Female

DRUGS (3)
  1. ESTRACE [Suspect]
     Active Substance: ESTRADIOL
     Indication: OESTROGEN REPLACEMENT THERAPY
     Dosage: UNKNOWN
     Route: 061
     Dates: start: 2013
  2. METOPROLOL. [Concomitant]
     Active Substance: METOPROLOL
     Indication: ATRIAL FIBRILLATION
     Dosage: 50 MG, UNKNOWN
     Route: 048
     Dates: start: 2013
  3. XARELTO [Concomitant]
     Active Substance: RIVAROXABAN
     Indication: ATRIAL FIBRILLATION
     Dosage: 20 MG, UNKNOWN
     Route: 048
     Dates: start: 201605

REACTIONS (2)
  - Transient ischaemic attack [Recovered/Resolved]
  - Chloasma [Not Recovered/Not Resolved]

NARRATIVE: CASE EVENT DATE: 2013
